FAERS Safety Report 7294843-7 (Version None)
Quarter: 2011Q1

REPORT INFORMATION
  Report Type: 
  Country: None (occurrence: None)
  Receive Date: 20110216
  Receipt Date: 20110203
  Transmission Date: 20110831
  Serious: Yes (Hospitalization)
  Sender: FDA-Public Use
  Company Number: US-ELI_LILLY_AND_COMPANY-US201101003357

PATIENT
  Sex: Female

DRUGS (3)
  1. FORTEO [Suspect]
     Indication: OSTEOPOROSIS
     Dosage: 20 UG, DAILY (1/D)
  2. CALCIUM [Concomitant]
  3. VITAMIN D [Concomitant]

REACTIONS (3)
  - MEMORY IMPAIRMENT [None]
  - MUSCLE SPASMS [None]
  - HOSPITALISATION [None]
